FAERS Safety Report 24862870 (Version 1)
Quarter: 2025Q1

REPORT INFORMATION
  Report Type: Spontaneous
  Country: FR (occurrence: FR)
  Receive Date: 20250120
  Receipt Date: 20250120
  Transmission Date: 20250408
  Serious: Yes (Hospitalization)
  Sender: TEVA
  Company Number: None

PATIENT
  Age: 25 Year
  Sex: Female
  Weight: 92 kg

DRUGS (2)
  1. KETOPROFEN [Suspect]
     Active Substance: KETOPROFEN
     Indication: Tonsillitis
     Route: 048
     Dates: start: 20241120, end: 20241120
  2. PREDNISONE [Suspect]
     Active Substance: PREDNISONE
     Indication: Tonsillitis
     Route: 048
     Dates: start: 20241120, end: 20241120

REACTIONS (3)
  - Nephritic syndrome [Recovered/Resolved]
  - Leukocyturia [Recovered/Resolved]
  - Renal vein thrombosis [Recovered/Resolved]

NARRATIVE: CASE EVENT DATE: 20241121
